FAERS Safety Report 10639782 (Version 1)
Quarter: 2014Q4

REPORT INFORMATION
  Report Type: Spontaneous
  Country: US (occurrence: None)
  Receive Date: 20141205
  Receipt Date: 20141205
  Transmission Date: 20150529
  Serious: Yes (Other)
  Sender: FDA-Public Use
  Company Number: None

PATIENT
  Age: 48 Year
  Sex: Female
  Weight: 104.78 kg

DRUGS (1)
  1. VENLAFAXINE [Suspect]
     Active Substance: VENLAFAXINE HYDROCHLORIDE
     Dosage: 3+ MONTHS, 3 PILLS, ONCE DAILY, TAKEN BY MOUTH
     Route: 048

REACTIONS (1)
  - Alopecia [None]

NARRATIVE: CASE EVENT DATE: 20141108
